FAERS Safety Report 21380449 (Version 1)
Quarter: 2022Q3

REPORT INFORMATION
  Report Type: Spontaneous
  Country: GB (occurrence: GB)
  Receive Date: 20220927
  Receipt Date: 20220927
  Transmission Date: 20221026
  Serious: Yes (Other)
  Sender: FDA-Public Use
  Company Number: GB-PFIZER INC-PV202200032095

PATIENT
  Age: 58 Year
  Sex: Male

DRUGS (7)
  1. METHOTREXATE [Suspect]
     Active Substance: METHOTREXATE
     Indication: Psoriatic arthropathy
     Dosage: UNK
     Route: 065
  2. METHOTREXATE [Suspect]
     Active Substance: METHOTREXATE
     Indication: Immunosuppressant drug therapy
  3. METHOTREXATE [Suspect]
     Active Substance: METHOTREXATE
     Indication: Psoriasis
  4. COMIRNATY [Suspect]
     Active Substance: TOZINAMERAN
     Indication: COVID-19 immunisation
     Dosage: DOSE 3 (BOOSTER), SINGLE
     Route: 065
  5. GUSELKUMAB [Suspect]
     Active Substance: GUSELKUMAB
     Indication: Immunosuppressant drug therapy
     Dosage: UNK
     Route: 065
  6. GUSELKUMAB [Suspect]
     Active Substance: GUSELKUMAB
     Indication: Psoriasis
  7. GUSELKUMAB [Suspect]
     Active Substance: GUSELKUMAB
     Indication: Psoriatic arthropathy

REACTIONS (1)
  - Cutaneous vasculitis [Recovering/Resolving]
